FAERS Safety Report 13637509 (Version 2)
Quarter: 2017Q2

REPORT INFORMATION
  Report Type: Spontaneous
  Country: JP (occurrence: JP)
  Receive Date: 20170609
  Receipt Date: 20170623
  Transmission Date: 20170830
  Serious: Yes (Other)
  Sender: FDA-Public Use
  Company Number: JP-VIFOR (INTERNATIONAL) INC.-VIT-2017-06196

PATIENT
  Age: 87 Year
  Sex: Female
  Weight: 44 kg

DRUGS (8)
  1. JUSO [Concomitant]
     Active Substance: SODIUM BICARBONATE
     Route: 065
     Dates: start: 20161221
  2. FUBURIC [Concomitant]
     Route: 065
     Dates: start: 20170315
  3. STAYBLA [Concomitant]
     Active Substance: IMIDAFENACIN
     Route: 065
  4. REBAMIPIDE [Concomitant]
     Active Substance: REBAMIPIDE
  5. MIRCERA [Suspect]
     Active Substance: METHOXY POLYETHYLENE GLYCOL-EPOETIN BETA
     Indication: NEPHROGENIC ANAEMIA
     Route: 058
     Dates: start: 20170315
  6. KALIMATE [Concomitant]
     Active Substance: CALCIUM POLYSTYRENE SULFONATE
     Route: 065
     Dates: start: 20161221
  7. NIFEDIPINE. [Concomitant]
     Active Substance: NIFEDIPINE
     Route: 065
  8. CONIEL [Concomitant]
     Active Substance: BENIDIPINE HYDROCHLORIDE
     Route: 065

REACTIONS (10)
  - Cardiac failure congestive [Recovering/Resolving]
  - Weight increased [Recovered/Resolved]
  - Cough [Unknown]
  - Pleural effusion [Unknown]
  - Oedema [Unknown]
  - Sleep disorder [Unknown]
  - Renal impairment [Unknown]
  - Cardiomegaly [Unknown]
  - Blood creatinine increased [Unknown]
  - Dyspnoea [Unknown]

NARRATIVE: CASE EVENT DATE: 2017
